FAERS Safety Report 11677885 (Version 1)
Quarter: 2015Q4

REPORT INFORMATION
  Report Type: Spontaneous
  Country: US (occurrence: US)
  Receive Date: 20151028
  Receipt Date: 20151028
  Transmission Date: 20160304
  Serious: No
  Sender: FDA-Public Use
  Company Number: US-ACTELION PHARMACEUTICALS US, INC.-A-US2015-125924

PATIENT
  Age: 53 Year
  Sex: Female

DRUGS (10)
  1. VELETRI [Suspect]
     Active Substance: EPOPROSTENOL
     Indication: PULMONARY ARTERIAL HYPERTENSION
     Dosage: UNK
     Route: 042
     Dates: start: 20141204
  2. TRAMADOL. [Concomitant]
     Active Substance: TRAMADOL
  3. ONDANSETRON [Concomitant]
     Active Substance: ONDANSETRON
  4. DIGOXIN. [Concomitant]
     Active Substance: DIGOXIN
  5. AMBRISENTAN [Concomitant]
     Active Substance: AMBRISENTAN
     Indication: PULMONARY ARTERIAL HYPERTENSION
     Dosage: 10 MG, QD
     Dates: start: 20140815
  6. FUROSEMIDE. [Concomitant]
     Active Substance: FUROSEMIDE
  7. ATRIPLA [Concomitant]
     Active Substance: EFAVIRENZ\EMTRICITABINE\TENOFOVIR DISOPROXIL FUMARATE
  8. FISH OIL [Concomitant]
     Active Substance: FISH OIL
  9. HYDROXYZINE [Concomitant]
     Active Substance: HYDROXYZINE\HYDROXYZINE HYDROCHLORIDE
  10. MARINOL [Concomitant]
     Active Substance: DRONABINOL

REACTIONS (1)
  - Medical device complication [Recovered/Resolved]

NARRATIVE: CASE EVENT DATE: 20151011
